FAERS Safety Report 15979929 (Version 1)
Quarter: 2019Q1

REPORT INFORMATION
  Report Type: Spontaneous
  Country: IT (occurrence: IT)
  Receive Date: 20190219
  Receipt Date: 20190219
  Transmission Date: 20190418
  Serious: Yes (Other)
  Sender: FDA-Public Use
  Company Number: IT-ACCORD-058169

PATIENT
  Age: 11 Year
  Sex: Female

DRUGS (6)
  1. VALPROATE [Suspect]
     Active Substance: VALPROIC ACID
     Indication: ABNORMAL BEHAVIOUR
  2. ARIPIPRAZOLE. [Suspect]
     Active Substance: ARIPIPRAZOLE
     Indication: AFFECTIVE DISORDER
  3. TOPIRAMATE. [Suspect]
     Active Substance: TOPIRAMATE
     Indication: ABNORMAL BEHAVIOUR
  4. RISPERIDONE. [Suspect]
     Active Substance: RISPERIDONE
     Indication: ABNORMAL BEHAVIOUR
  5. ABILIFY [Suspect]
     Active Substance: ARIPIPRAZOLE
     Indication: MENTAL DISORDER
     Dosage: ALSO RECEIVED 8 MG
     Route: 048
  6. QUETIAPINE. [Suspect]
     Active Substance: QUETIAPINE
     Indication: AFFECTIVE DISORDER
     Route: 048

REACTIONS (4)
  - Product use issue [Unknown]
  - Tardive dyskinesia [Recovered/Resolved]
  - Drug ineffective [Unknown]
  - Incorrect dose administered [Unknown]
